FAERS Safety Report 8618255-6 (Version None)
Quarter: 2012Q3

REPORT INFORMATION
  Report Type: 
  Country: None (occurrence: None)
  Receive Date: 20120824
  Receipt Date: 20120815
  Transmission Date: 20120928
  Serious: Yes (Hospitalization, Other)
  Sender: FDA-Public Use
  Company Number: US-BIOGENIDEC-2011BI044274

PATIENT
  Age: 48 Year
  Sex: Female

DRUGS (4)
  1. TYSABRI [Suspect]
     Indication: MULTIPLE SCLEROSIS
     Route: 042
     Dates: start: 20091217, end: 20100812
  2. AVONEX [Concomitant]
     Route: 030
  3. TYSABRI [Suspect]
     Route: 042
     Dates: start: 20110308, end: 20110804
  4. AVONEX [Concomitant]
     Indication: MULTIPLE SCLEROSIS
     Route: 030
     Dates: start: 20040525

REACTIONS (3)
  - GASTRIC ULCER HAEMORRHAGE [None]
  - LYMPHOMA [None]
  - MULTIPLE SCLEROSIS [None]
